FAERS Safety Report 24960753 (Version 1)
Quarter: 2025Q1

REPORT INFORMATION
  Report Type: Spontaneous
  Country: US (occurrence: US)
  Receive Date: 20250212
  Receipt Date: 20250212
  Transmission Date: 20250409
  Serious: No
  Sender: PHARMACOSMOS A/S
  Company Number: US-NEBO-685187

PATIENT
  Sex: Male

DRUGS (2)
  1. MONOFERRIC [Suspect]
     Active Substance: FERRIC DERISOMALTOSE
     Indication: Product used for unknown indication
     Dates: start: 20250110, end: 20250110
  2. MONOFERRIC [Suspect]
     Active Substance: FERRIC DERISOMALTOSE
     Indication: Product used for unknown indication
     Dates: start: 20250110, end: 20250110

REACTIONS (4)
  - Cough [Unknown]
  - Throat irritation [Unknown]
  - Lip swelling [Unknown]
  - Similar reaction on previous exposure to drug [Recovered/Resolved]

NARRATIVE: CASE EVENT DATE: 20250110
